FAERS Safety Report 4653310-7 (Version None)
Quarter: 2005Q2

REPORT INFORMATION
  Report Type: 
  Country: None (occurrence: None)
  Receive Date: 20050503
  Receipt Date: 20050503
  Transmission Date: 20051028
  Serious: Yes (Hospitalization)
  Sender: FDA-Public Use
  Company Number: None

PATIENT
  Age: 42 Year
  Sex: Female
  Weight: 63.5036 kg

DRUGS (2)
  1. AVELOX [Suspect]
     Indication: HYPERTENSION
     Dosage: PO TOOK 1
     Route: 048
     Dates: start: 20010101
  2. AVELOX [Suspect]
     Indication: SUPRAVENTRICULAR TACHYCARDIA
     Dosage: PO TOOK 1
     Route: 048
     Dates: start: 20010101

REACTIONS (2)
  - BLOOD PRESSURE INCREASED [None]
  - SUPRAVENTRICULAR TACHYCARDIA [None]
